FAERS Safety Report 25832564 (Version 4)
Quarter: 2025Q4

REPORT INFORMATION
  Report Type: Spontaneous
  Country: JP (occurrence: JP)
  Receive Date: 20250922
  Receipt Date: 20251205
  Transmission Date: 20260117
  Serious: Yes (Other)
  Sender: GALDERMA
  Company Number: JP-GALDERMA-JP2025011286

PATIENT

DRUGS (5)
  1. NEMOLIZUMAB [Suspect]
     Active Substance: NEMOLIZUMAB
     Indication: Neurodermatitis
     Dosage: 1 DOSAGE FORM PER 4 WEEKS
     Route: 058
     Dates: start: 20250604, end: 20250604
  2. NEMOLIZUMAB [Suspect]
     Active Substance: NEMOLIZUMAB
     Dosage: 1 DOSAGE FORM PER 4 WEEKS
     Route: 058
     Dates: start: 202507, end: 202507
  3. NEMOLIZUMAB [Suspect]
     Active Substance: NEMOLIZUMAB
     Dosage: 1 DOSAGE FORM PER 4 WEEKS
     Route: 058
     Dates: start: 2025, end: 2025
  4. NEMOLIZUMAB [Suspect]
     Active Substance: NEMOLIZUMAB
     Dosage: 1 DOSAGE FORM PER 4 WEEKS
     Route: 058
     Dates: start: 2025, end: 2025
  5. OLOPATADINE HYDROCHLORIDE [Concomitant]
     Active Substance: OLOPATADINE HYDROCHLORIDE
     Indication: Neurodermatitis
     Dosage: 20 MILLIGRAM
     Route: 048
     Dates: start: 20240610

REACTIONS (2)
  - Dermatitis exfoliative generalised [Recovered/Resolved]
  - Eyelid oedema [Recovered/Resolved]

NARRATIVE: CASE EVENT DATE: 20250618
